FAERS Safety Report 8300076-5 (Version None)
Quarter: 2012Q2

REPORT INFORMATION
  Report Type: 
  Country: None (occurrence: None)
  Receive Date: 20120420
  Receipt Date: 20120417
  Transmission Date: 20120825
  Serious: No
  Sender: FDA-Public Use
  Company Number: US-PFIZER INC-2012095258

PATIENT
  Sex: Female
  Weight: 55 kg

DRUGS (2)
  1. RELPAX [Suspect]
     Indication: HYPERSENSITIVITY
     Dosage: 40 MG, AS NEEDED
     Route: 048
  2. RELPAX [Suspect]
     Indication: MIGRAINE

REACTIONS (2)
  - CHEST DISCOMFORT [None]
  - DRUG INEFFECTIVE [None]
